FAERS Safety Report 5911586-X (Version None)
Quarter: 2008Q4

REPORT INFORMATION
  Report Type: 
  Country: None (occurrence: None)
  Receive Date: 20081003
  Receipt Date: 20080926
  Transmission Date: 20090506
  Serious: Yes (Other)
  Sender: FDA-Public Use
  Company Number: OSCN-NO-0810S-0550

PATIENT
  Age: 73 Year
  Sex: Female

DRUGS (12)
  1. OMNISCAN [Suspect]
     Indication: DRUG USE FOR UNKNOWN INDICATION
     Dosage: LESS THAN 10 ML., SINGLE DOSE, I.V.
     Route: 042
     Dates: start: 20021228, end: 20021228
  2. OMNISCAN [Suspect]
     Indication: DRUG USE FOR UNKNOWN INDICATION
     Dosage: LESS THAN 10 ML., SINGLE DOSE, I.V.
     Route: 042
     Dates: start: 20060527, end: 20060527
  3. WARFARIN SODIUM [Concomitant]
  4. VALSARTAN (DIOVANE) [Concomitant]
  5. CILOSTAZOL (PLEETAL) [Concomitant]
  6. NORVASC [Concomitant]
  7. DIGOXIN [Concomitant]
  8. BEPRIDIL (BEPRICOR) [Concomitant]
  9. ALFACALCIDOL (ALFAROL) [Concomitant]
  10. BEVITOTAL COMP (WASSER V) [Concomitant]
  11. FERROUS CITRATE [Concomitant]
  12. GADOPENTETATE DIMEGLUMINE (MAGNEVIST) [Concomitant]

REACTIONS (2)
  - HYPERKERATOSIS [None]
  - NEPHROGENIC SYSTEMIC FIBROSIS [None]
